FAERS Safety Report 25588358 (Version 1)
Quarter: 2025Q3

REPORT INFORMATION
  Report Type: Spontaneous
  Country: EU (occurrence: EU)
  Receive Date: 20250722
  Receipt Date: 20250722
  Transmission Date: 20251021
  Serious: Yes (Other)
  Sender: BIOGEN
  Company Number: None

PATIENT
  Age: 49 Year
  Sex: Female
  Weight: 58 kg

DRUGS (1)
  1. TYSABRI [Suspect]
     Active Substance: NATALIZUMAB
     Indication: Multiple sclerosis
     Dosage: NATALIZUMAB IV ADMINISTRATION EVERY 28-30 DAYS
     Route: 050
     Dates: start: 20200907, end: 20250612

REACTIONS (1)
  - Malignant melanoma stage 0 [Unknown]

NARRATIVE: CASE EVENT DATE: 20250601
